FAERS Safety Report 11593665 (Version 2)
Quarter: 2015Q4

REPORT INFORMATION
  Report Type: Report from Study
  Country: NO (occurrence: NO)
  Receive Date: 20151005
  Receipt Date: 20151008
  Transmission Date: 20160304
  Serious: Yes (Other)
  Sender: FDA-Public Use
  Company Number: NO-GLAXOSMITHKLINE-NO2015GSK138771

PATIENT
  Age: 70 Year
  Sex: Female
  Weight: 100 kg

DRUGS (7)
  1. TYKERB [Suspect]
     Active Substance: LAPATINIB DITOSYLATE
     Indication: BREAST NEOPLASM
     Dosage: UNK
     Dates: start: 20090429
  2. BURINEX [Concomitant]
     Active Substance: BUMETANIDE
     Dosage: 1 MG, BID
  3. ZOPICLONE [Concomitant]
     Active Substance: ZOPICLONE
     Dosage: 7.5 MG, QD
  4. RAMIPRIL. [Concomitant]
     Active Substance: RAMIPRIL
  5. ALLOPUR [Concomitant]
     Active Substance: ALLOPURINOL
     Dosage: 300 MG, QD
  6. SOBRIL [Concomitant]
     Active Substance: OXAZEPAM
     Dosage: 10 MG, QD
  7. PANODIL [Concomitant]
     Active Substance: ACETAMINOPHEN
     Dosage: 1 G, QID

REACTIONS (1)
  - Glioblastoma [Not Recovered/Not Resolved]

NARRATIVE: CASE EVENT DATE: 20150909
